FAERS Safety Report 5237215-9 (Version None)
Quarter: 2007Q1

REPORT INFORMATION
  Report Type: 
  Country: None (occurrence: None)
  Receive Date: 20061208
  Receipt Date: 20050525
  Transmission Date: 20070707
  Serious: Yes (Other)
  Sender: FDA-Public Use
  Company Number: 2005UW08152

PATIENT
  Age: 44 Year
  Sex: Female

DRUGS (1)
  1. CRESTOR [Suspect]

REACTIONS (1)
  - ALOPECIA [None]
